FAERS Safety Report 20068449 (Version 1)
Quarter: 2021Q4

REPORT INFORMATION
  Report Type: Spontaneous
  Country: CN (occurrence: CN)
  Receive Date: 20211115
  Receipt Date: 20211115
  Transmission Date: 20220303
  Serious: Yes (Other)
  Sender: FDA-Public Use
  Company Number: CN-SA-SAC20211111001191

PATIENT
  Age: 49 Year
  Sex: Female
  Weight: 72 kg

DRUGS (3)
  1. CAPECITABINE [Suspect]
     Active Substance: CAPECITABINE
     Indication: Chemotherapy
     Dosage: 1.5 G, BID
     Route: 048
     Dates: start: 20211015, end: 20211104
  2. OXALIPLATIN [Suspect]
     Active Substance: OXALIPLATIN
     Indication: Prophylactic chemotherapy
     Route: 041
     Dates: start: 20211015, end: 20211015
  3. DEXTROSE [Concomitant]
     Active Substance: DEXTROSE
     Dosage: INDICATION:SOLVENT OF THE MEDICATION
     Route: 041
     Dates: start: 20211015, end: 20211015

REACTIONS (1)
  - White blood cell count decreased [Recovered/Resolved]

NARRATIVE: CASE EVENT DATE: 20211104
